FAERS Safety Report 4813397-5 (Version None)
Quarter: 2005Q4

REPORT INFORMATION
  Report Type: 
  Country: None (occurrence: None)
  Receive Date: 20051026
  Receipt Date: 20051019
  Transmission Date: 20060501
  Serious: Yes (Death)
  Sender: FDA-Public Use
  Company Number: 2005JP001950

PATIENT
  Age: 57 Year
  Sex: Female
  Weight: 47 kg

DRUGS (16)
  1. TACROLIMUS CAPSULES (TACROLIMUS) CAPSULE [Suspect]
     Indication: RHEUMATOID ARTHRITIS
     Dosage: 1.50 MG, /D, ORAL
     Route: 048
     Dates: start: 20050614, end: 20050824
  2. CALBLOCK (AZELNIDIPINE) PER ORAL NOS [Suspect]
     Indication: ANGINA PECTORIS
     Dosage: ORAL
     Route: 048
     Dates: end: 20050101
  3. PREDNISOLONE [Concomitant]
  4. INFREE (INDOMETACIN) PER ORAL NOS [Concomitant]
  5. THYRADIN-S (LEVOTHYROXINE SODIUM) PER ORAL NOS [Concomitant]
  6. OMEPRAL (OMEPRAZOLE) PER ORAL NOS [Concomitant]
  7. CYTOTEC (MISOPROSTOL) PER ORAL NOS [Concomitant]
  8. CALCIUM CARBONATE (CALCIUM CARBONATE) PER ORAL NOS [Concomitant]
  9. ALINAMIN F (FURSULTIAMINE) PER ORAL NOS [Concomitant]
  10. LOCHOL PER ORAL NOS [Concomitant]
  11. RENAGEL (SEVELAMER HYDROCHLORIDE) PER ORAL NOS [Concomitant]
  12. FRANDOL TAPE (ISOSORBIDE DINITRATE) TAPE [Concomitant]
  13. LAXOBERON (SODIUM PICOSULFATE) PER ORAL NOS [Concomitant]
  14. ARGAMATE JELLY (CALCIUM POLYSTYRENE SULFONATE) JELLY [Concomitant]
  15. HALCION (TRIAZOLAM) PER ORAL NOS [Concomitant]
  16. ALLELOCK (OLOPATADINE HYDROCHLORIDE) PER ORAL NOS [Concomitant]

REACTIONS (15)
  - ACUTE RESPIRATORY DISTRESS SYNDROME [None]
  - BETA HAEMOLYTIC STREPTOCOCCAL INFECTION [None]
  - BLOOD PRESSURE DECREASED [None]
  - ENTEROCOCCAL INFECTION [None]
  - GASTROINTESTINAL AMYLOIDOSIS [None]
  - GENERAL PHYSICAL HEALTH DETERIORATION [None]
  - LIVER DISORDER [None]
  - METABOLIC DISORDER [None]
  - PATHOGEN RESISTANCE [None]
  - PLEURAL EFFUSION [None]
  - PNEUMONIA [None]
  - SEPSIS [None]
  - STAPHYLOCOCCAL INFECTION [None]
  - STENOTROPHOMONAS INFECTION [None]
  - SUPERINFECTION [None]
